FAERS Safety Report 17690265 (Version 1)
Quarter: 2020Q2

REPORT INFORMATION
  Report Type: Report from Study
  Country: None (occurrence: US)
  Receive Date: 20200421
  Receipt Date: 20200421
  Transmission Date: 20200714
  Serious: Yes (Hospitalization, Other)
  Sender: FDA-Public Use
  Company Number: US-ABBVIE-20P-163-3371573-00

PATIENT
  Sex: Male

DRUGS (2)
  1. IMBRUVICA [Suspect]
     Active Substance: IBRUTINIB
     Indication: CHRONIC LYMPHOCYTIC LEUKAEMIA
     Route: 048
     Dates: start: 20190301
  2. PLAVIX [Suspect]
     Active Substance: CLOPIDOGREL BISULFATE
     Indication: PRODUCT USED FOR UNKNOWN INDICATION
     Route: 065

REACTIONS (16)
  - Renal failure [Unknown]
  - Pulmonary mass [Unknown]
  - Blood pressure abnormal [Unknown]
  - Mental disorder [Unknown]
  - Nausea [Unknown]
  - Pyrexia [Unknown]
  - Gastric disorder [Unknown]
  - Chest pain [Unknown]
  - Pneumonia [Unknown]
  - Dyspnoea [Unknown]
  - Haemorrhage [Unknown]
  - Contusion [Unknown]
  - Chronic obstructive pulmonary disease [Unknown]
  - Heart rate decreased [Unknown]
  - Pleural effusion [Unknown]
  - Schizophrenia [Unknown]
